FAERS Safety Report 9060688 (Version 1)
Quarter: 2013Q1

REPORT INFORMATION
  Report Type: Spontaneous
  Country: US (occurrence: US)
  Receive Date: 20130204
  Receipt Date: 20130204
  Transmission Date: 20140127
  Serious: No
  Sender: FDA-Public Use
  Company Number: US-BAYER-2013-008205

PATIENT
  Age: 72 Year
  Sex: Male
  Weight: 68.03 kg

DRUGS (3)
  1. ALEVE CAPLET/TABLET,MIDOL EXTENDED RELIEF CAPLET [Suspect]
     Dosage: 1 DF, QD
     Route: 048
     Dates: start: 2000
  2. LYRICA [Concomitant]
  3. AMITRIPTYLINE [Concomitant]

REACTIONS (2)
  - Erectile dysfunction [Not Recovered/Not Resolved]
  - Incorrect drug administration duration [Not Recovered/Not Resolved]
